FAERS Safety Report 6232636-X (Version None)
Quarter: 2009Q2

REPORT INFORMATION
  Report Type: 
  Country: None (occurrence: None)
  Receive Date: 20090615
  Receipt Date: 20090615
  Transmission Date: 20091009
  Serious: Yes (Other)
  Sender: FDA-Public Use
  Company Number: None

PATIENT
  Sex: Female
  Weight: 55.7924 kg

DRUGS (7)
  1. HALDOL [Suspect]
     Indication: AFFECTIVE DISORDER
     Dosage: 5MG QHS PO
     Route: 048
     Dates: start: 20090514, end: 20090529
  2. HALDOL [Suspect]
     Indication: PSYCHOTIC DISORDER
     Dosage: 5MG QHS PO
     Route: 048
     Dates: start: 20090514, end: 20090529
  3. PROTONIX [Concomitant]
  4. FERROUS SULFATE TAB [Concomitant]
  5. ADVAIR HFA [Concomitant]
  6. AMANTADINE HCL [Concomitant]
  7. DEPAKOTE [Concomitant]

REACTIONS (2)
  - EXTRAPYRAMIDAL DISORDER [None]
  - TREMOR [None]
